FAERS Safety Report 24248946 (Version 1)
Quarter: 2024Q3

REPORT INFORMATION
  Report Type: Spontaneous
  Country: GB (occurrence: GB)
  Receive Date: 20240826
  Receipt Date: 20240826
  Transmission Date: 20241016
  Serious: Yes (Hospitalization)
  Sender: VERTEX
  Company Number: GB-VERTEX PHARMACEUTICALS-2024-013563

PATIENT
  Sex: Male

DRUGS (1)
  1. ELEXACAFTOR\IVACAFTOR\TEZACAFTOR [Suspect]
     Active Substance: ELEXACAFTOR\IVACAFTOR\TEZACAFTOR
     Indication: Cystic fibrosis
     Dosage: 2 TABS IN AM (75 MG IVA/ 50 MG TEZA/ 100MG ELEXA)
     Route: 048

REACTIONS (1)
  - Hospitalisation [Unknown]

NARRATIVE: CASE EVENT DATE: 20240101
